FAERS Safety Report 25339161 (Version 3)
Quarter: 2025Q3

REPORT INFORMATION
  Report Type: Report from Study
  Country: US (occurrence: US)
  Receive Date: 20250521
  Receipt Date: 20250811
  Transmission Date: 20251020
  Serious: No
  Sender: MALLINCKRODT
  Company Number: US-MALLINCKRODT-MNK202502987

PATIENT
  Age: 68 Year
  Sex: Female

DRUGS (3)
  1. CORTICOTROPIN [Suspect]
     Active Substance: CORTICOTROPIN
     Indication: Scleritis
     Route: 058
     Dates: start: 20250510
  2. CELLCEPT [Suspect]
     Active Substance: MYCOPHENOLATE MOFETIL
     Indication: Product used for unknown indication
  3. CELLCEPT [Suspect]
     Active Substance: MYCOPHENOLATE MOFETIL

REACTIONS (5)
  - Vitreous floaters [Unknown]
  - Abdominal discomfort [Unknown]
  - Anxiety [Unknown]
  - Vertigo [Unknown]
  - Sleep disorder [Unknown]

NARRATIVE: CASE EVENT DATE: 20240101
